FAERS Safety Report 4849917-4 (Version None)
Quarter: 2005Q4

REPORT INFORMATION
  Report Type: 
  Country: None (occurrence: None)
  Receive Date: 20051114
  Receipt Date: 20050131
  Transmission Date: 20060501
  Serious: Yes (Other)
  Sender: FDA-Public Use
  Company Number: 20050200023

PATIENT
  Age: 65 Year
  Sex: Female

DRUGS (3)
  1. PROMETHAZINE [Suspect]
     Indication: NAUSEA
     Dosage: 25 MG; ONCE; IV
     Route: 042
     Dates: start: 20050105, end: 20050105
  2. PROMETHAZINE [Suspect]
     Indication: VOMITING
     Dosage: 25 MG; ONCE; IV
     Route: 042
     Dates: start: 20050105, end: 20050105
  3. FENTANYL CITRATE [Suspect]
     Indication: PROCEDURAL PAIN
     Dosage: 40 UG; ONCE; TD
     Route: 062
     Dates: start: 20050105, end: 20050105

REACTIONS (1)
  - RESPIRATORY DISTRESS [None]
